FAERS Safety Report 7061110-6 (Version None)
Quarter: 2010Q4

REPORT INFORMATION
  Report Type: 
  Country: None (occurrence: None)
  Receive Date: 20101026
  Receipt Date: 20101020
  Transmission Date: 20110411
  Serious: Yes (Other)
  Sender: FDA-Public Use
  Company Number: FR-PFIZER INC-2010133919

PATIENT
  Age: 68 Year
  Sex: Male

DRUGS (2)
  1. TAHOR [Suspect]
     Indication: HYPERLIPIDAEMIA
     Dosage: 10 MG, 1X/DAY
  2. ALFUZOSIN HYDROCHLORIDE [Suspect]
     Indication: MICTURITION URGENCY
     Dosage: 10 MG, 1X/DAY

REACTIONS (3)
  - INTERSTITIAL GRANULOMATOUS DERMATITIS [None]
  - PSEUDOLYMPHOMA [None]
  - SKIN PLAQUE [None]
